FAERS Safety Report 13072526 (Version 1)
Quarter: 2016Q4

REPORT INFORMATION
  Report Type: Spontaneous
  Country: US (occurrence: US)
  Receive Date: 20161229
  Receipt Date: 20161229
  Transmission Date: 20170207
  Serious: No
  Sender: FDA-Public Use
  Company Number: US-GLAXOSMITHKLINE-US2016GSK192553

PATIENT
  Age: 54 Year
  Sex: Female
  Weight: 122.45 kg

DRUGS (5)
  1. ACYCLOVIR TABLET [Suspect]
     Active Substance: ACYCLOVIR
     Indication: UNEVALUABLE EVENT
     Dosage: UNK
     Route: 048
     Dates: start: 201607, end: 201607
  2. ZYCLARA [Suspect]
     Active Substance: IMIQUIMOD
     Indication: ACTINIC KERATOSIS
     Dosage: UNK
     Route: 061
     Dates: start: 201606, end: 201607
  3. BACITRACIN. [Suspect]
     Active Substance: BACITRACIN
     Indication: PRODUCT USED FOR UNKNOWN INDICATION
  4. ZOVIRAX [Suspect]
     Active Substance: ACYCLOVIR
     Indication: UNEVALUABLE EVENT
     Dosage: UNK
     Route: 061
     Dates: start: 201607, end: 201607
  5. LEVOTHYROXINE. [Concomitant]
     Active Substance: LEVOTHYROXINE
     Indication: HYPOTHYROIDISM
     Dosage: UNK, QD
     Route: 048
     Dates: start: 201602

REACTIONS (7)
  - Skin irritation [Recovering/Resolving]
  - Erythema [Recovering/Resolving]
  - Drug ineffective [Recovering/Resolving]
  - Dry skin [Recovering/Resolving]
  - Chapped lips [Recovering/Resolving]
  - Skin disorder [Recovering/Resolving]
  - Dermatitis contact [Recovering/Resolving]

NARRATIVE: CASE EVENT DATE: 201607
